FAERS Safety Report 5279126-9 (Version None)
Quarter: 2007Q1

REPORT INFORMATION
  Report Type: 
  Country: None (occurrence: None)
  Receive Date: 20061208
  Receipt Date: 20051028
  Transmission Date: 20070707
  Serious: Yes (Life-Threatening, Hospitalization)
  Sender: FDA-Public Use
  Company Number: 2005UW16278

PATIENT
  Sex: Male

DRUGS (8)
  1. CRESTOR [Suspect]
     Dosage: 10 MG QD PO
     Route: 048
  2. TRICOR [Suspect]
     Dosage: 145 MG QD PO
     Route: 048
  3. METFORMIN HCL [Concomitant]
  4. NAPROXEN [Concomitant]
  5. PROTONIX [Concomitant]
  6. GLIPIZIDE [Concomitant]
  7. COZAAR [Concomitant]
  8. ASPIRIN [Concomitant]

REACTIONS (2)
  - BLOOD CREATINE PHOSPHOKINASE INCREASED [None]
  - RENAL FAILURE ACUTE [None]
